FAERS Safety Report 9970414 (Version 2)
Quarter: 2014Q1

REPORT INFORMATION
  Report Type: Report from Study
  Country: US (occurrence: US)
  Receive Date: 20140306
  Receipt Date: 20140306
  Transmission Date: 20141002
  Serious: No
  Sender: FDA-Public Use
  Company Number: US-ABBVIE-13P-163-1143716-00

PATIENT
  Age: 71 Year
  Sex: Female
  Weight: 49.49 kg

DRUGS (9)
  1. HUMIRA [Suspect]
     Indication: COLITIS ULCERATIVE
     Dates: start: 20130629
  2. HUMIRA [Suspect]
     Indication: CROHN^S DISEASE
  3. LEVOTHYROXIN [Concomitant]
     Indication: HYPOTHYROIDISM
  4. KLONOPIN [Concomitant]
     Indication: MUSCLE SPASMS
  5. PAXIL [Concomitant]
     Indication: ANXIETY
  6. LIPITOR [Concomitant]
     Indication: BLOOD CHOLESTEROL INCREASED
  7. TRIAMTERENE AND HYDROCHLOROTHIAZID [Concomitant]
     Indication: LOCAL SWELLING
     Dosage: 37.5/25 MG
  8. VITAMIN B-12 [Concomitant]
     Indication: VITAMIN B12 DECREASED
  9. CALCIUM + VITAMIN D [Concomitant]
     Indication: VITAMIN SUPPLEMENTATION

REACTIONS (7)
  - Skin exfoliation [Not Recovered/Not Resolved]
  - Dry skin [Not Recovered/Not Resolved]
  - Pruritus [Not Recovered/Not Resolved]
  - Rash [Not Recovered/Not Resolved]
  - Eczema [Not Recovered/Not Resolved]
  - Psoriasis [Not Recovered/Not Resolved]
  - Rash erythematous [Not Recovered/Not Resolved]
